FAERS Safety Report 22351735 (Version 3)
Quarter: 2023Q4

REPORT INFORMATION
  Report Type: Spontaneous
  Country: US (occurrence: US)
  Receive Date: 20230522
  Receipt Date: 20231107
  Transmission Date: 20240110
  Serious: No
  Sender: FDA-Public Use
  Company Number: US-BRISTOL-MYERS SQUIBB COMPANY-2023-071502

PATIENT
  Age: 50 Year
  Sex: Male

DRUGS (2)
  1. REVLIMID [Suspect]
     Active Substance: LENALIDOMIDE
     Indication: Plasma cell myeloma
     Route: 048
  2. VELCADE [Suspect]
     Active Substance: BORTEZOMIB
     Indication: Product used for unknown indication

REACTIONS (8)
  - Oedema [Unknown]
  - Off label use [Unknown]
  - Arthralgia [Unknown]
  - Chest pain [Unknown]
  - Cough [Unknown]
  - Nasopharyngitis [Unknown]
  - Haemoptysis [Unknown]
  - Constipation [Unknown]
